FAERS Safety Report 11983400 (Version 1)
Quarter: 2016Q1

REPORT INFORMATION
  Report Type: Spontaneous
  Country: CA (occurrence: CA)
  Receive Date: 20160201
  Receipt Date: 20160201
  Transmission Date: 20160526
  Serious: Yes (Hospitalization, Other)
  Sender: FDA-Public Use
  Company Number: CA-B.I. PHARMACEUTICALS,INC./RIDGEFIELD-2016-BI-05886CN

PATIENT
  Age: 70 Year
  Sex: Male

DRUGS (3)
  1. JARDIANCE [Suspect]
     Active Substance: EMPAGLIFLOZIN
     Indication: DIABETES MELLITUS
     Route: 065
  2. INSULIN [Concomitant]
     Active Substance: INSULIN NOS
     Indication: PRODUCT USED FOR UNKNOWN INDICATION
     Route: 065
  3. JENTADUETO [Concomitant]
     Active Substance: LINAGLIPTIN\METFORMIN HYDROCHLORIDE
     Indication: PRODUCT USED FOR UNKNOWN INDICATION
     Route: 065

REACTIONS (11)
  - Urinary tract infection [Unknown]
  - Asthenia [Unknown]
  - Cold sweat [Unknown]
  - Myocardial infarction [Unknown]
  - Delirium [Unknown]
  - Escherichia infection [Unknown]
  - Tremor [Unknown]
  - Sepsis [Unknown]
  - Pyrexia [Unknown]
  - Dyspnoea [Unknown]
  - Troponin increased [Unknown]
